FAERS Safety Report 11162461 (Version 1)
Quarter: 2015Q2

REPORT INFORMATION
  Report Type: Spontaneous
  Country: KR (occurrence: None)
  Receive Date: 20150602
  Receipt Date: 20150602
  Transmission Date: 20150821
  Serious: Yes (Death, Hospitalization)
  Sender: FDA-Public Use
  Company Number: INT_00778_2015

PATIENT

DRUGS (5)
  1. RANITIDINE [Concomitant]
     Active Substance: RANITIDINE\RANITIDINE HYDROCHLORIDE
  2. DEXAMETHASONE. [Concomitant]
     Active Substance: DEXAMETHASONE
  3. PACLITAXEL. [Suspect]
     Active Substance: PACLITAXEL
     Indication: BLADDER TRANSITIONAL CELL CARCINOMA STAGE I
     Dosage: OVER 3 HOURS ON DAY 1 INTRAVENOUS (NOT OTHERWISE SPECIFIED)
     Route: 042
  4. CYCLOPHOSPHAMIDE. [Suspect]
     Active Substance: CYCLOPHOSPHAMIDE
     Indication: BLADDER TRANSITIONAL CELL CARCINOMA STAGE I
     Dosage: DAYS 1-7 IN 3 WEEKS
     Route: 048
  5. PHENIRAMINE [Concomitant]
     Active Substance: PHENIRAMINE

REACTIONS (3)
  - Febrile neutropenia [None]
  - Septic shock [None]
  - Pneumonia bacterial [None]
